FAERS Safety Report 18192775 (Version 2)
Quarter: 2020Q3

REPORT INFORMATION
  Report Type: Spontaneous
  Country: IT (occurrence: IT)
  Receive Date: 20200825
  Receipt Date: 20200914
  Transmission Date: 20201103
  Serious: Yes (Hospitalization)
  Sender: FDA-Public Use
  Company Number: NVSC2020IT231252

PATIENT
  Age: 45 Year
  Sex: Female

DRUGS (2)
  1. COLCHICINA LIRCA [Concomitant]
     Active Substance: COLCHICINE
     Indication: IMMUNE TOLERANCE INDUCTION
     Dosage: 1 DF
     Route: 048
  2. ILARIS [Suspect]
     Active Substance: CANAKINUMAB
     Indication: FAMILIAL MEDITERRANEAN FEVER
     Dosage: 150 MG, ONCE/SINGLE
     Route: 058
     Dates: start: 20200803, end: 20200803

REACTIONS (7)
  - Erythema [Recovering/Resolving]
  - Laryngeal oedema [Recovering/Resolving]
  - Laryngospasm [Unknown]
  - Anaphylactoid reaction [Unknown]
  - Type I hypersensitivity [Unknown]
  - Anaphylactic reaction [Unknown]
  - Flushing [Unknown]

NARRATIVE: CASE EVENT DATE: 20200803
